FAERS Safety Report 11796120 (Version 1)
Quarter: 2015Q4

REPORT INFORMATION
  Report Type: Spontaneous
  Country: US (occurrence: US)
  Receive Date: 20151203
  Receipt Date: 20151203
  Transmission Date: 20160305
  Serious: Yes (Other)
  Sender: FDA-Public Use
  Company Number: US-PFIZER INC-2015405183

PATIENT

DRUGS (3)
  1. DIGOXIN. [Interacting]
     Active Substance: DIGOXIN
  2. COUMADIN [Interacting]
     Active Substance: WARFARIN SODIUM
  3. AZULFIDINE EN-TABS [Suspect]
     Active Substance: SULFASALAZINE
     Indication: CROHN^S DISEASE
     Dosage: UNK
     Dates: start: 1976

REACTIONS (3)
  - Product use issue [Unknown]
  - Potentiating drug interaction [Unknown]
  - Small intestinal obstruction [Unknown]

NARRATIVE: CASE EVENT DATE: 1976
